FAERS Safety Report 23119480 (Version 1)
Quarter: 2023Q4

REPORT INFORMATION
  Report Type: Spontaneous
  Country: US (occurrence: None)
  Receive Date: 20231029
  Receipt Date: 20231029
  Transmission Date: 20240110
  Serious: Yes (Other)
  Sender: FDA-Public Use
  Company Number: US-ENDO-CASE-0036274

PATIENT
  Sex: Male

DRUGS (4)
  1. ACETAMINOPHEN\OXYCODONE HYDROCHLORIDE [Suspect]
     Active Substance: ACETAMINOPHEN\OXYCODONE HYDROCHLORIDE
  2. TRAMADOL HYDROCHLORIDE [Suspect]
     Active Substance: TRAMADOL HYDROCHLORIDE
  3. MORPHINE SULFATE [Suspect]
     Active Substance: MORPHINE SULFATE
  4. FENTANYL CITRATE [Suspect]
     Active Substance: FENTANYL CITRATE

REACTIONS (10)
  - Dysphagia [Unknown]
  - Vision blurred [Unknown]
  - Learning disorder [Unknown]
  - Drug withdrawal syndrome neonatal [Unknown]
  - Dependence [Unknown]
  - Asthma [Unknown]
  - Visual impairment [Unknown]
  - Developmental delay [Unknown]
  - Disability [Unknown]
  - Foetal exposure during pregnancy [Unknown]
